FAERS Safety Report 7099450-7 (Version None)
Quarter: 2010Q4

REPORT INFORMATION
  Report Type: 
  Country: None (occurrence: None)
  Receive Date: 20101104
  Receipt Date: 20101021
  Transmission Date: 20110411
  Serious: Yes (Hospitalization)
  Sender: FDA-Public Use
  Company Number: 2010US000065

PATIENT
  Age: 52 Year
  Sex: Female

DRUGS (10)
  1. ENTEREG [Suspect]
     Indication: POSTOPERATIVE ILEUS
     Dosage: 12 MG; PO
     Route: 048
     Dates: start: 20100420, end: 20100421
  2. M.V.I. [Concomitant]
  3. COZAAR [Concomitant]
  4. FLAGYL [Concomitant]
  5. DILAUDID [Concomitant]
  6. UNASYN [Concomitant]
  7. ATIVAN [Concomitant]
  8. CEFOXITIN [Concomitant]
  9. ATENOLOL [Concomitant]
  10. TORADOL [Concomitant]

REACTIONS (1)
  - POST PROCEDURAL PULMONARY EMBOLISM [None]
